FAERS Safety Report 7425036-8 (Version None)
Quarter: 2011Q2

REPORT INFORMATION
  Report Type: 
  Country: None (occurrence: None)
  Receive Date: 20110420
  Receipt Date: 20110407
  Transmission Date: 20111010
  Serious: Yes (Hospitalization, Disabling, Other)
  Sender: FDA-Public Use
  Company Number: HU-BAYER-2011-030126

PATIENT
  Age: 53 Year
  Sex: Male

DRUGS (7)
  1. AUGMENTIN [Concomitant]
     Indication: PNEUMONIA
     Dosage: UNK
     Route: 048
     Dates: start: 20110101, end: 20110101
  2. AVELOX [Suspect]
     Indication: PNEUMONIA
     Dosage: 400 MG, QD
     Route: 048
     Dates: start: 20110101, end: 20110101
  3. TAMIFLU [Concomitant]
     Indication: INFECTION PROPHYLAXIS
     Dosage: UNK
     Dates: start: 20110101
  4. THEOSPIREX [Concomitant]
     Indication: DYSPNOEA
     Dosage: UNK
     Dates: start: 20110101
  5. CLEXANE [Concomitant]
     Indication: THROMBOSIS PROPHYLAXIS
     Dosage: UNK
     Route: 058
     Dates: start: 20110101
  6. AVELOX [Suspect]
     Dosage: 400 MG, QD
     Route: 042
     Dates: start: 20110101, end: 20110101
  7. CONCOR [Concomitant]
     Indication: CARDIAC FAILURE
     Dosage: UNK
     Route: 048
     Dates: start: 20110101

REACTIONS (1)
  - BLINDNESS [None]
